FAERS Safety Report 18948835 (Version 1)
Quarter: 2021Q1

REPORT INFORMATION
  Report Type: Spontaneous
  Country: US (occurrence: US)
  Receive Date: 20210227
  Receipt Date: 20210227
  Transmission Date: 20210420
  Serious: No
  Sender: FDA-Public Use
  Company Number: US-ORGANON-O2102USA007725

PATIENT
  Age: 37 Year
  Sex: Female
  Weight: 82.54 kg

DRUGS (1)
  1. NEXPLANON [Suspect]
     Active Substance: ETONOGESTREL
     Indication: CONTRACEPTION
     Dosage: 1 IMPLANT
     Route: 059
     Dates: start: 20191024, end: 20210222

REACTIONS (3)
  - Menorrhagia [Recovered/Resolved]
  - Product use issue [Unknown]
  - Progesterone decreased [Recovered/Resolved]

NARRATIVE: CASE EVENT DATE: 20210113
